FAERS Safety Report 6314872-7 (Version None)
Quarter: 2009Q3

REPORT INFORMATION
  Report Type: 
  Country: None (occurrence: None)
  Receive Date: 20090817
  Receipt Date: 20090817
  Transmission Date: 20100115
  Serious: No
  Sender: FDA-Public Use
  Company Number: None

PATIENT
  Age: 73 Year
  Sex: Female

DRUGS (5)
  1. TERBINAFINE HCL [Suspect]
     Indication: ONYCHOMYCOSIS
     Dosage: 250MG DAILY 047
     Dates: start: 20090529, end: 20090629
  2. METFORMIN HCL [Concomitant]
  3. GLIPIZIDE [Concomitant]
  4. CRESTOR [Concomitant]
  5. ALLEGRA [Concomitant]

REACTIONS (1)
  - DYSGEUSIA [None]
